FAERS Safety Report 23389941 (Version 1)
Quarter: 2024Q1

REPORT INFORMATION
  Report Type: Spontaneous
  Country: PT (occurrence: PT)
  Receive Date: 20240111
  Receipt Date: 20240111
  Transmission Date: 20240409
  Serious: Yes (Other)
  Sender: FDA-Public Use
  Company Number: PT-ALKEM LABORATORIES LIMITED-PT-ALKEM-2023-17084

PATIENT
  Age: 5 Year
  Sex: Male

DRUGS (15)
  1. CLOBAZAM [Interacting]
     Active Substance: CLOBAZAM
     Indication: Epilepsy
     Dosage: 5 MILLIGRAM
     Route: 065
  2. CLOBAZAM [Interacting]
     Active Substance: CLOBAZAM
     Dosage: UNK (DOSE LOWERED)
     Route: 065
  3. ISONIAZID [Interacting]
     Active Substance: ISONIAZID
     Indication: Tuberculosis
     Dosage: 10 MILLIGRAM/KILOGRAM
     Route: 065
  4. ISONIAZID [Interacting]
     Active Substance: ISONIAZID
     Dosage: UNK (RE-INTRODUCED)
     Route: 065
  5. ETHAMBUTOL [Interacting]
     Active Substance: ETHAMBUTOL HYDROCHLORIDE
     Indication: Tuberculosis
     Dosage: 20 MILLIGRAM/KILOGRAM
     Route: 065
  6. ETHAMBUTOL [Interacting]
     Active Substance: ETHAMBUTOL HYDROCHLORIDE
     Dosage: UNK (RE-INTRODUCED)
     Route: 065
  7. PHENOBARBITAL [Interacting]
     Active Substance: PHENOBARBITAL
     Indication: Epilepsy
     Dosage: 3 MILLIGRAM/KILOGRAM
     Route: 065
  8. PHENOBARBITAL [Interacting]
     Active Substance: PHENOBARBITAL
     Dosage: UNK (DOSE LOWERED)
     Route: 065
  9. PHENOBARBITAL [Interacting]
     Active Substance: PHENOBARBITAL
     Dosage: UNK (DOSE INCREASED)
     Route: 065
  10. PYRAZINAMIDE [Interacting]
     Active Substance: PYRAZINAMIDE
     Indication: Tuberculosis
     Dosage: 20 MILLIGRAM/KILOGRAM
     Route: 065
  11. PYRAZINAMIDE [Interacting]
     Active Substance: PYRAZINAMIDE
     Dosage: UNK (RESTARTED DOSE)
     Route: 065
  12. RIFAMPIN [Interacting]
     Active Substance: RIFAMPIN
     Indication: Tuberculosis
     Dosage: 15 MILLIGRAM/KILOGRAM
     Route: 065
  13. RIFAMPIN [Interacting]
     Active Substance: RIFAMPIN
     Dosage: UNK (RE-INTRODUCED)
     Route: 065
  14. ZONISAMIDE [Interacting]
     Active Substance: ZONISAMIDE
     Indication: Epilepsy
     Dosage: 5 MILLIGRAM/KILOGRAM
     Route: 065
  15. ZONISAMIDE [Interacting]
     Active Substance: ZONISAMIDE
     Dosage: UNK (DOSE LOWERED)
     Route: 065

REACTIONS (4)
  - Drug-induced liver injury [Recovered/Resolved]
  - Drug interaction [Unknown]
  - Seizure [Unknown]
  - Toxicity to various agents [Unknown]
